FAERS Safety Report 6597681-3 (Version None)
Quarter: 2010Q1

REPORT INFORMATION
  Report Type: 
  Country: None (occurrence: None)
  Receive Date: 20100223
  Receipt Date: 20100216
  Transmission Date: 20100710
  Serious: Yes (Death, Hospitalization)
  Sender: FDA-Public Use
  Company Number: US-AMGEN-QUU389352

PATIENT
  Sex: Male
  Weight: 105.3 kg

DRUGS (13)
  1. NPLATE [Suspect]
     Indication: IDIOPATHIC THROMBOCYTOPENIC PURPURA
     Dates: start: 20090217, end: 20090224
  2. CORTICOSTEROIDS [Concomitant]
     Dates: start: 20081210
  3. LOPRESSOR [Concomitant]
     Route: 048
  4. DELTASONE [Concomitant]
     Route: 048
  5. LEVAQUIN [Concomitant]
     Route: 048
  6. OXYGEN [Concomitant]
  7. ALBUTEROL + IPRATROPIUM INHALER [Concomitant]
     Route: 055
  8. LASIX [Concomitant]
     Route: 048
  9. MYCELEX [Concomitant]
  10. PRINIVIL [Concomitant]
     Route: 048
  11. ALDACTONE [Concomitant]
     Route: 048
  12. GUAIFENESIN [Concomitant]
     Route: 048
  13. NOVOLOG [Concomitant]
     Route: 058

REACTIONS (4)
  - CARDIAC FAILURE CONGESTIVE [None]
  - MEDICAL DEVICE COMPLICATION [None]
  - PNEUMONIA [None]
  - RESPIRATORY DISTRESS [None]
